FAERS Safety Report 10501252 (Version 1)
Quarter: 2014Q4

REPORT INFORMATION
  Report Type: Spontaneous
  Country: US (occurrence: None)
  Receive Date: 20141006
  Receipt Date: 20141006
  Transmission Date: 20150528
  Serious: No
  Sender: FDA-Public Use
  Company Number: None

PATIENT
  Age: 66 Year
  Sex: Male
  Weight: 120.2 kg

DRUGS (2)
  1. MAGNESIUM OXIDE. [Suspect]
     Active Substance: MAGNESIUM OXIDE
     Route: 048
     Dates: start: 20140627, end: 20140630
  2. METOPROLOL [Suspect]
     Active Substance: METOPROLOL
     Route: 048
     Dates: start: 20140627, end: 20140630

REACTIONS (4)
  - Nausea [None]
  - Bradycardia [None]
  - Abdominal discomfort [None]
  - Hypotension [None]

NARRATIVE: CASE EVENT DATE: 20140630
